FAERS Safety Report 6938711-6 (Version None)
Quarter: 2010Q3

REPORT INFORMATION
  Report Type: 
  Country: None (occurrence: None)
  Receive Date: 20100824
  Receipt Date: 20100811
  Transmission Date: 20110219
  Serious: Yes (Other)
  Sender: FDA-Public Use
  Company Number: PHEH2007US15188

PATIENT
  Sex: Male

DRUGS (8)
  1. ZOMETA [Suspect]
     Indication: MULTIPLE MYELOMA
     Dosage: 4 MG, QMO
     Route: 042
     Dates: start: 20020620, end: 20061019
  2. THALIDOMID [Suspect]
     Indication: MULTIPLE MYELOMA
     Dosage: 300 MG, QD
     Route: 048
     Dates: start: 20030113, end: 20030214
  3. THALIDOMID [Suspect]
     Dosage: 400 MG, QD
     Route: 048
     Dates: start: 20030314, end: 20040102
  4. THALIDOMID [Suspect]
     Dosage: 200 MG, QD
     Route: 048
     Dates: start: 20040220, end: 20070322
  5. THALIDOMID [Suspect]
     Dosage: 200 MG, QD
     Route: 048
     Dates: start: 20071024
  6. METHADONE [Concomitant]
  7. ALBUTEROL [Concomitant]
  8. PROTOVIT [Concomitant]

REACTIONS (12)
  - BONE DEBRIDEMENT [None]
  - BONE DISORDER [None]
  - BONE LESION [None]
  - COMPUTERISED TOMOGRAM ABNORMAL [None]
  - ERYTHEMA [None]
  - IMPAIRED HEALING [None]
  - OEDEMA [None]
  - ORAL SURGERY [None]
  - OSTEONECROSIS OF JAW [None]
  - PAIN IN JAW [None]
  - SOFT TISSUE INFECTION [None]
  - TOOTH EXTRACTION [None]
